FAERS Safety Report 19429381 (Version 1)
Quarter: 2021Q2

REPORT INFORMATION
  Report Type: Spontaneous
  Country: CH (occurrence: CH)
  Receive Date: 20210617
  Receipt Date: 20210617
  Transmission Date: 20210717
  Serious: Yes (Hospitalization, Other)
  Sender: FDA-Public Use
  Company Number: CH-TEVA-2021-CH-1922291

PATIENT
  Age: 31 Year
  Sex: Female

DRUGS (6)
  1. COAMOXICILLINE [Suspect]
     Active Substance: AMOXICILLIN\CLAVULANIC ACID
     Indication: TOXOPLASMOSIS
     Dosage: 6.6 GRAM DAILY; THREE TIMES A DAY
     Route: 065
  2. AZITHROMYCIN ANHYDROUS. [Suspect]
     Active Substance: AZITHROMYCIN ANHYDROUS
     Indication: TOXOPLASMOSIS
     Dosage: 500 MILLIGRAM DAILY;
     Route: 065
  3. PYRIMETHAMINE/SULFADIAZINE [Suspect]
     Active Substance: PYRIMETHAMINE\SULFADIAZINE
     Indication: TOXOPLASMOSIS
     Dosage: 1 DOSAGE FORMS DAILY; 25 MG/4G PER DAY
     Route: 065
  4. CEFTRIAXONE. [Suspect]
     Active Substance: CEFTRIAXONE
     Indication: TOXOPLASMOSIS
     Dosage: RECEIVED ONE DOSE
     Route: 065
  5. SPIRAMYCIN [Suspect]
     Active Substance: SPIRAMYCIN
     Indication: TOXOPLASMOSIS
     Dosage: 9 MIO IU PER DAY
     Route: 065
  6. FOLINIC ACID [Suspect]
     Active Substance: LEUCOVORIN
     Indication: TOXOPLASMOSIS
     Route: 065

REACTIONS (7)
  - Dyspnoea [Recovering/Resolving]
  - Dermatitis allergic [Recovering/Resolving]
  - Drug ineffective [Unknown]
  - Oedema [Recovering/Resolving]
  - Hypersensitivity pneumonitis [Recovering/Resolving]
  - Live birth [Unknown]
  - Maternal exposure during pregnancy [Unknown]
